FAERS Safety Report 9003430 (Version 2)
Quarter: 2013Q1

REPORT INFORMATION
  Report Type: Report from Study
  Country: US (occurrence: US)
  Receive Date: 20130108
  Receipt Date: 20130204
  Transmission Date: 20140127
  Serious: Yes (Hospitalization)
  Sender: FDA-Public Use
  Company Number: US-UCBSA-047497

PATIENT
  Age: 81 Year
  Sex: Female
  Weight: 49.89 kg

DRUGS (27)
  1. ROTIGOTINE [Suspect]
     Indication: PARKINSON^S DISEASE
     Route: 062
     Dates: start: 20080107, end: 2008
  2. ROTIGOTINE [Suspect]
     Indication: PARKINSON^S DISEASE
     Route: 062
     Dates: start: 20081125
  3. FOLIC ACID [Concomitant]
     Indication: NEUROPATHY PERIPHERAL
     Route: 048
     Dates: start: 199801
  4. LIDOCAIN [Concomitant]
     Indication: PAIN
  5. ISOSORBIDE [Concomitant]
     Indication: HYPERTENSIVE HEART DISEASE
     Dates: start: 20091014
  6. VIT B12 INJ [Concomitant]
     Indication: NEUROPATHY PERIPHERAL
     Dosage: SINGLE DOSE - 1 CC;
     Dates: start: 199801
  7. PLAVIX [Concomitant]
     Indication: STENT PLACEMENT
     Route: 048
     Dates: start: 20021228
  8. NEXIUM [Concomitant]
     Indication: GASTROOESOPHAGEAL REFLUX DISEASE
     Route: 048
     Dates: start: 200212
  9. DAPSONE [Concomitant]
     Indication: DERMATITIS HERPETIFORMIS
     Route: 048
     Dates: start: 1998
  10. CALCIUM + D [Concomitant]
     Indication: OSTEOPOROSIS
     Dosage: 600 MG  AND 400 MG
     Route: 048
     Dates: start: 20080101
  11. ASPIRIN [Concomitant]
     Indication: STENT PLACEMENT
     Route: 048
     Dates: start: 20081228
  12. COSOPT [Concomitant]
     Indication: GLAUCOMA
     Route: 047
     Dates: start: 199801
  13. CLARITIN [Concomitant]
     Indication: SEASONAL ALLERGY
     Dosage: SEASONAL ONCE IN A DAY
     Dates: start: 199801
  14. IMODIUM [Concomitant]
     Indication: DIARRHOEA
     Dosage: AS NESSECARY
     Dates: start: 2002
  15. KETOPROFEN [Concomitant]
     Indication: PAIN
     Dates: start: 20080709
  16. FLONASE [Concomitant]
     Indication: HYPERSENSITIVITY
     Dates: start: 200905
  17. LEVOTHYROXINE [Concomitant]
     Indication: HYPOTHYROIDISM
     Dates: start: 20090726
  18. LEVOTHYROXINE [Concomitant]
     Indication: HYPOTHYROIDISM
     Dates: start: 20090626, end: 20090726
  19. AMANTIDINE [Concomitant]
     Indication: PARKINSONIAN REST TREMOR
     Dosage: QD OR BID
     Dates: start: 20100808
  20. TRAMADOL [Concomitant]
     Indication: PAIN
     Dosage: AS NESSECARY
     Dates: start: 201101
  21. HYDROCODONE/APAP [Concomitant]
     Indication: PAIN
     Dates: start: 20110323
  22. GABAPENTIN [Concomitant]
     Indication: PAIN
     Dates: start: 20110323
  23. VITAMIN D [Concomitant]
     Indication: VITAMIN D DEFICIENCY
     Dates: start: 20110323
  24. PRENATAL VITAMINS [Concomitant]
     Indication: HYPOVITAMINOSIS
     Dates: start: 20110323
  25. FEOSOL [Concomitant]
     Indication: ANAEMIA
     Dates: start: 201101
  26. ACTONEL [Concomitant]
     Indication: OSTEOPOROSIS
     Route: 048
     Dates: start: 200904
  27. ACTONEL [Concomitant]
     Indication: OSTEOPOROSIS
     Route: 048
     Dates: start: 1990

REACTIONS (1)
  - Haemorrhagic stroke [Recovered/Resolved]
